FAERS Safety Report 18664488 (Version 1)
Quarter: 2020Q4

REPORT INFORMATION
  Report Type: Other
  Country: ES (occurrence: ES)
  Receive Date: 20201225
  Receipt Date: 20201225
  Transmission Date: 20210114
  Serious: Yes (Other)
  Sender: FDA-Public Use
  Company Number: ES-ROCHE-2735854

PATIENT

DRUGS (1)
  1. TOCILIZUMAB. [Suspect]
     Active Substance: TOCILIZUMAB
     Indication: COVID-19
     Route: 042

REACTIONS (11)
  - Diarrhoea [Unknown]
  - Hepatotoxicity [Unknown]
  - Thrombophlebitis superficial [Unknown]
  - Off label use [Unknown]
  - Hepatic enzyme increased [Unknown]
  - Intentional product use issue [Unknown]
  - Bacteraemia [Unknown]
  - Blood bilirubin increased [Unknown]
  - Headache [Unknown]
  - Photopsia [Unknown]
  - Thrombocytopenia [Unknown]
